FAERS Safety Report 4966962-9 (Version None)
Quarter: 2006Q2

REPORT INFORMATION
  Report Type: 
  Country: None (occurrence: None)
  Receive Date: 20060403
  Receipt Date: 20060318
  Transmission Date: 20061013
  Serious: Yes (Hospitalization)
  Sender: FDA-Public Use
  Company Number: 2006SP001388

PATIENT
  Age: 39 Year
  Sex: Female

DRUGS (1)
  1. XOPENEX [Suspect]
     Dosage: INHALATION
     Route: 055

REACTIONS (5)
  - CARDIAC FAILURE CONGESTIVE [None]
  - COMA [None]
  - DRUG INEFFECTIVE [None]
  - LOSS OF CONSCIOUSNESS [None]
  - MYOCARDIAL INFARCTION [None]
